FAERS Safety Report 9154844 (Version 1)
Quarter: 2013Q1

REPORT INFORMATION
  Report Type: Spontaneous
  Country: IT (occurrence: None)
  Receive Date: 20130207
  Receipt Date: 20130207
  Transmission Date: 20140127
  Serious: Yes (Hospitalization)
  Sender: FDA-Public Use
  Company Number: AUR-APL-2013-01110

PATIENT
  Age: 45 Year
  Sex: Male

DRUGS (1)
  1. AMOXICILLIN (AMOXICILLIN) [Suspect]
     Indication: PRODUCT USED FOR UNKNOWN INDICATION
     Route: 048
     Dates: start: 20121226, end: 20121226

REACTIONS (5)
  - Hyperhidrosis [None]
  - Rash [None]
  - Syncope [None]
  - Vomiting [None]
  - Cold sweat [None]
